FAERS Safety Report 4398137-9 (Version None)
Quarter: 2004Q3

REPORT INFORMATION
  Report Type: 
  Country: None (occurrence: None)
  Receive Date: 20040713
  Receipt Date: 20040629
  Transmission Date: 20050211
  Serious: Yes (Other)
  Sender: FDA-Public Use
  Company Number: A03200402144

PATIENT

DRUGS (1)
  1. PLAQUENIL [Suspect]

REACTIONS (1)
  - MYELODYSPLASTIC SYNDROME [None]
